FAERS Safety Report 14310986 (Version 1)
Quarter: 2017Q4

REPORT INFORMATION
  Report Type: Spontaneous
  Country: US (occurrence: US)
  Receive Date: 20171221
  Receipt Date: 20171221
  Transmission Date: 20180321
  Serious: No
  Sender: FDA-Public Use
  Company Number: US-SA-2016SA228749

PATIENT
  Sex: Female
  Weight: 75.29 kg

DRUGS (3)
  1. ELIQUIS [Suspect]
     Active Substance: APIXABAN
     Indication: STENT PLACEMENT
     Route: 065
     Dates: start: 201610
  2. PLAVIX [Suspect]
     Active Substance: CLOPIDOGREL BISULFATE
     Indication: STENT PLACEMENT
     Route: 065
     Dates: start: 201610, end: 201611
  3. PLAVIX [Suspect]
     Active Substance: CLOPIDOGREL BISULFATE
     Indication: POOR PERIPHERAL CIRCULATION
     Route: 065
     Dates: start: 201610, end: 201611

REACTIONS (7)
  - Dermatitis contact [Unknown]
  - Pruritus [Unknown]
  - Eczema [Unknown]
  - Rash pustular [Unknown]
  - Condition aggravated [Unknown]
  - Rash [Unknown]
  - Skin haemorrhage [Unknown]
